FAERS Safety Report 9926639 (Version 1)
Quarter: 2014Q1

REPORT INFORMATION
  Report Type: Spontaneous
  Country: US (occurrence: US)
  Receive Date: 20140226
  Receipt Date: 20140226
  Transmission Date: 20141002
  Serious: Yes (Disabling)
  Sender: FDA-Public Use
  Company Number: US-AMGEN-USASP2013076428

PATIENT
  Age: 71 Year
  Sex: Female
  Weight: 81.63 kg

DRUGS (2)
  1. ENBREL [Suspect]
     Indication: RHEUMATOID ARTHRITIS
     Dosage: 50 MG, QWK
     Route: 058
  2. PREDNISONE [Concomitant]
     Dosage: UNK

REACTIONS (8)
  - Localised infection [Recovered/Resolved]
  - Neoplasm skin [Unknown]
  - Local swelling [Unknown]
  - Feeling hot [Unknown]
  - Pain in extremity [Unknown]
  - Inflammation [Unknown]
  - Condition aggravated [Unknown]
  - Injury [Unknown]
